FAERS Safety Report 8028752-2 (Version None)
Quarter: 2012Q1

REPORT INFORMATION
  Report Type: 
  Country: None (occurrence: None)
  Receive Date: 20120106
  Receipt Date: 20120103
  Transmission Date: 20120608
  Serious: Yes (Hospitalization, Other)
  Sender: FDA-Public Use
  Company Number: US-MERCK-1111USA01739

PATIENT
  Age: 66 Year
  Sex: Male
  Weight: 78 kg

DRUGS (11)
  1. ZOCOR [Suspect]
     Indication: HYPERLIPIDAEMIA
     Route: 048
     Dates: start: 20110101, end: 20111031
  2. METFORMIN [Concomitant]
     Indication: DIABETES MELLITUS
     Route: 065
     Dates: end: 20111031
  3. LEVEMIR [Concomitant]
     Indication: DIABETES MELLITUS
     Route: 065
     Dates: start: 20111031
  4. LISINOPRIL [Concomitant]
     Indication: HYPERTENSION
     Route: 048
     Dates: end: 20111031
  5. TRAZODONE HYDROCHLORIDE [Concomitant]
     Route: 065
     Dates: end: 20111031
  6. HUMALOG [Concomitant]
     Indication: DIABETES MELLITUS
     Route: 065
     Dates: start: 20111031
  7. ASPIRIN [Concomitant]
     Indication: CARDIOVASCULAR DISORDER
     Route: 048
     Dates: end: 20111031
  8. LISINOPRIL [Concomitant]
     Indication: DIABETES MELLITUS
     Route: 048
     Dates: end: 20111031
  9. SINEMET [Concomitant]
     Indication: PARKINSON'S DISEASE
     Dosage: 1-2 TIMES A DAY
     Route: 048
  10. RISPERIDONE [Suspect]
     Indication: MAJOR DEPRESSION
     Route: 048
     Dates: start: 20110101
  11. GLIPIZIDE [Concomitant]
     Indication: DIABETES MELLITUS
     Route: 065
     Dates: end: 20111031

REACTIONS (3)
  - RHABDOMYOLYSIS [None]
  - DRUG INTERACTION [None]
  - RENAL FAILURE ACUTE [None]
